FAERS Safety Report 7376424-X (Version None)
Quarter: 2011Q1

REPORT INFORMATION
  Report Type: 
  Country: None (occurrence: None)
  Receive Date: 20110316
  Receipt Date: 20110309
  Transmission Date: 20110831
  Serious: Yes (Death, Hospitalization)
  Sender: FDA-Public Use
  Company Number: 2011SP000783

PATIENT
  Age: 75 Year
  Sex: Male
  Weight: 65.7716 kg

DRUGS (14)
  1. ARFORMOTEROL TARTRATE [Suspect]
     Indication: CHRONIC OBSTRUCTIVE PULMONARY DISEASE
     Dosage: 15 UG;INHALATION
     Route: 055
     Dates: start: 20100608, end: 20110208
  2. PREDNISONE [Concomitant]
  3. ALBUTEROL [Concomitant]
  4. BETAMETHASONE DP [Concomitant]
  5. FLOVENT [Concomitant]
  6. SOLU-MEDROL [Concomitant]
  7. ADVAIR HFA [Concomitant]
  8. PROAIR HFA [Concomitant]
  9. CEFTRIAXONE [Concomitant]
  10. DIOVAN [Concomitant]
  11. OXYGEN [Concomitant]
  12. ATROVENT [Concomitant]
  13. LEVAQUIN [Concomitant]
  14. AZITHROMYCIN [Concomitant]

REACTIONS (2)
  - PNEUMONIA [None]
  - RESPIRATORY ARREST [None]
